FAERS Safety Report 4394785-0 (Version None)
Quarter: 2004Q3

REPORT INFORMATION
  Report Type: 
  Country: None (occurrence: None)
  Receive Date: 20040706
  Receipt Date: 20040622
  Transmission Date: 20050211
  Serious: Yes (Hospitalization)
  Sender: FDA-Public Use
  Company Number: 04P-056-0264662-00

PATIENT
  Age: 72 Year
  Sex: Male

DRUGS (12)
  1. HUMIRA [Suspect]
     Indication: RHEUMATOID ARTHRITIS
     Dosage: 40 MG, 2 IN 1 WK, SUBCUTANEOUS
     Route: 058
     Dates: start: 20040225, end: 20040305
  2. PREDNISOLONE [Concomitant]
  3. CELECOXIB [Concomitant]
  4. TIANEPTINE [Concomitant]
  5. OMEPRAZOLE [Concomitant]
  6. CALCIUM CARBONATE D3 [Concomitant]
  7. TRAMADOL [Concomitant]
  8. MACROGOL [Concomitant]
  9. IPRATROPIUM BROMIDE [Concomitant]
  10. ALBUTEROL SULFATE [Concomitant]
  11. ACETAMINOPHEN [Concomitant]
  12. ANAKINRA [Concomitant]

REACTIONS (3)
  - CHOLECYSTITIS ACUTE [None]
  - INCISIONAL HERNIA [None]
  - LIVER ABSCESS [None]
